FAERS Safety Report 7443619-6 (Version None)
Quarter: 2011Q2

REPORT INFORMATION
  Report Type: 
  Country: None (occurrence: None)
  Receive Date: 20110428
  Receipt Date: 20100922
  Transmission Date: 20111010
  Serious: No
  Sender: FDA-Public Use
  Company Number: US-BAUSCH-2010BL005363

PATIENT
  Age: 49 Year
  Sex: Male

DRUGS (1)
  1. IPRATROPIUM BROMIDE [Suspect]
     Indication: RHINITIS ALLERGIC
     Route: 045
     Dates: start: 20100501

REACTIONS (2)
  - EYE DISCHARGE [None]
  - HEADACHE [None]
